FAERS Safety Report 21632500 (Version 1)
Quarter: 2022Q4

REPORT INFORMATION
  Report Type: Spontaneous
  Country: US (occurrence: US)
  Receive Date: 20221123
  Receipt Date: 20221123
  Transmission Date: 20230113
  Serious: No
  Sender: FDA-Public Use
  Company Number: US-ORGANON-O2211USA000723

PATIENT
  Age: 36 Year
  Sex: Female

DRUGS (6)
  1. FOLLISTIM AQ [Suspect]
     Active Substance: FOLLITROPIN
     Indication: Infertility female
     Dosage: 300 IU/0.36 ML 1=1, INJECT 100 UNITS UNDER THE SKIN (SUBCUTANEOUS INJECTION) EVERY OTHER DAY
     Route: 058
  2. FOLLISTIM AQ [Suspect]
     Active Substance: FOLLITROPIN
     Indication: Anovulatory cycle
  3. PROGESTERONE [Suspect]
     Active Substance: PROGESTERONE
     Dosage: UNK
     Route: 067
  4. OMEGA-3 FATTY ACIDS [Concomitant]
     Active Substance: OMEGA-3 FATTY ACIDS
     Dosage: UNK
     Route: 048
  5. MINERALS\VITAMINS [Concomitant]
     Active Substance: MINERALS\VITAMINS
     Dosage: PRENATAL TAB COMPLETE
     Route: 048
  6. CHOLECALCIFEROL [Concomitant]
     Active Substance: CHOLECALCIFEROL
     Dosage: 1000 UNITS
     Route: 048

REACTIONS (2)
  - Constipation [Unknown]
  - Abdominal distension [Unknown]

NARRATIVE: CASE EVENT DATE: 20221102
